FAERS Safety Report 8049832-1 (Version None)
Quarter: 2012Q1

REPORT INFORMATION
  Report Type: 
  Country: None (occurrence: None)
  Receive Date: 20120111
  Receipt Date: 20001229
  Transmission Date: 20120608
  Serious: Yes (Other)
  Sender: FDA-Public Use
  Company Number: ACO_26322_2000

PATIENT
  Sex: Female

DRUGS (11)
  1. IBUPROFEN (IBUPROFEN) [Concomitant]
  2. PROZAC [Concomitant]
  3. TIGAN [Concomitant]
  4. PROSOM (ESTAZOLAM) [Concomitant]
  5. VICODIN [Concomitant]
  6. BUPIVACAINE HCL [Concomitant]
  7. ZANAFLEX [Suspect]
     Indication: FIBROMYALGIA
     Dosage: 12 MG, TID, ORAL, 12 MG, AM + PM, 16MG HS, ORAL, 1 MG, TID, ORAL
     Route: 048
     Dates: start: 20000801, end: 20001001
  8. ZANAFLEX [Suspect]
     Indication: FIBROMYALGIA
     Dosage: 12 MG, TID, ORAL, 12 MG, AM + PM, 16MG HS, ORAL, 1 MG, TID, ORAL
     Route: 048
     Dates: start: 20001101, end: 20001226
  9. ZANAFLEX [Suspect]
     Indication: FIBROMYALGIA
     Dosage: 12 MG, TID, ORAL, 12 MG, AM + PM, 16MG HS, ORAL, 1 MG, TID, ORAL
     Route: 048
     Dates: start: 20001001, end: 20001101
  10. MS CONTIN [Concomitant]
  11. LIDOCAINE [Concomitant]

REACTIONS (10)
  - NAUSEA [None]
  - PARANOIA [None]
  - DRUG WITHDRAWAL SYNDROME [None]
  - DELUSION [None]
  - ARTHRALGIA [None]
  - WITHDRAWAL SYNDROME [None]
  - MYALGIA [None]
  - LIVER FUNCTION TEST ABNORMAL [None]
  - PSYCHOTIC DISORDER [None]
  - HALLUCINATION, VISUAL [None]
